FAERS Safety Report 4660043-X (Version None)
Quarter: 2005Q2

REPORT INFORMATION
  Report Type: 
  Country: None (occurrence: None)
  Receive Date: 20050512
  Receipt Date: 20050429
  Transmission Date: 20051028
  Serious: Yes (Disabling, Other)
  Sender: FDA-Public Use
  Company Number: SEWYE631529APR05

PATIENT
  Sex: Male

DRUGS (3)
  1. ENBREL [Suspect]
     Indication: PSORIATIC ARTHROPATHY
     Route: 058
     Dates: start: 20041221, end: 20050117
  2. CYCLOSPORINE [Concomitant]
     Dosage: THE DOSE REGIMEN WAS NOT SPECIFIED
  3. METHOTREXATE [Concomitant]

REACTIONS (2)
  - FACIAL PALSY [None]
  - LIBIDO DECREASED [None]
